FAERS Safety Report 9395755 (Version 1)
Quarter: 2013Q3

REPORT INFORMATION
  Report Type: Spontaneous
  Country: US (occurrence: US)
  Receive Date: 20130711
  Receipt Date: 20130711
  Transmission Date: 20140515
  Serious: Yes (Death)
  Sender: FDA-Public Use
  Company Number: US-COVIDIEN/TYCO HEALTHCARE/MALLINCKRODT-T201301116

PATIENT
  Age: 43 Year
  Sex: Female
  Weight: 95.24 kg

DRUGS (5)
  1. OXYCODONE/ACETAMINOPHEN [Suspect]
     Indication: BACK PAIN
     Dosage: ONE TABLET BID
     Route: 048
     Dates: start: 201301, end: 201302
  2. OXYCODONE/ACETAMINOPHEN [Suspect]
     Indication: NECK PAIN
  3. ALBUTEROL                          /00139501/ [Concomitant]
     Indication: ASTHMA
     Dosage: UNK
  4. ZANTAC [Concomitant]
     Indication: IRRITABLE BOWEL SYNDROME
     Dosage: UNK
  5. XANAX [Concomitant]
     Indication: ANXIETY
     Dosage: UNK, PRN

REACTIONS (1)
  - Drug screen negative [Not Recovered/Not Resolved]
